FAERS Safety Report 24891413 (Version 1)
Quarter: 2025Q1

REPORT INFORMATION
  Report Type: Spontaneous
  Country: JP (occurrence: JP)
  Receive Date: 20250127
  Receipt Date: 20250127
  Transmission Date: 20250408
  Serious: Yes (Other)
  Sender: ASTELLAS
  Company Number: JP-ASTELLAS-2025-AER-003338

PATIENT
  Age: 36 Year
  Sex: Female

DRUGS (2)
  1. PROGRAF [Suspect]
     Active Substance: TACROLIMUS
     Indication: Habitual abortion
     Route: 048
  2. ASPIRIN [Concomitant]
     Active Substance: ASPIRIN
     Indication: Product used for unknown indication
     Route: 048

REACTIONS (6)
  - Cervical incompetence [Unknown]
  - Intrauterine infection [Unknown]
  - Premature rupture of membranes [Unknown]
  - Stillbirth [Unknown]
  - Maternal exposure during pregnancy [Unknown]
  - Off label use [Unknown]
